FAERS Safety Report 5727489-X (Version None)
Quarter: 2008Q2

REPORT INFORMATION
  Report Type: 
  Country: None (occurrence: None)
  Receive Date: 20080505
  Receipt Date: 20080428
  Transmission Date: 20081010
  Serious: Yes (Other)
  Sender: FDA-Public Use
  Company Number: US-ROCHE-562262

PATIENT
  Sex: Female

DRUGS (16)
  1. DACLIZUMAB [Suspect]
     Dosage: UP TO 5 DOSES BIWEEKLY
     Route: 065
  2. DACLIZUMAB [Suspect]
     Route: 065
  3. INFLIXIMAB [Suspect]
     Dosage: BEFORE ISLET INFUSION
     Route: 042
  4. SIROLIMUS [Suspect]
     Dosage: TARGET LEVEL: 10-12 NG/ML
     Route: 065
  5. TACROLIMUS [Suspect]
     Dosage: TARGET LEVEL: 3-5 NG/ML
     Route: 065
  6. ETANERCEPT [Suspect]
     Route: 065
  7. LOVENOX [Concomitant]
     Dosage: STARTING ON DAY OF ISLET TRANSPLANTATION
     Route: 058
  8. PENTOXIFYLLINE [Concomitant]
     Dosage: FOR THE FIRST TRIMESTER
     Route: 048
  9. VITAMIN A [Concomitant]
  10. VITAMIN B6 [Concomitant]
  11. ASCORBIC ACID [Concomitant]
  12. VITAMIN E [Concomitant]
  13. STATIN [Concomitant]
  14. VALCYTE [Concomitant]
     Dosage: FOLLOWING EACH ISLET TRANSPLANTATION
     Route: 048
  15. BACTRIM [Concomitant]
     Dosage: 400/80MG
  16. BACTRIM [Concomitant]
     Dosage: 400/80MG

REACTIONS (3)
  - INTERSTITIAL LUNG DISEASE [None]
  - NEUTROPENIA [None]
  - OVARIAN CYST [None]
